FAERS Safety Report 13952486 (Version 1)
Quarter: 2017Q3

REPORT INFORMATION
  Report Type: Spontaneous
  Country: US (occurrence: US)
  Receive Date: 20170911
  Receipt Date: 20170911
  Transmission Date: 20171128
  Serious: No
  Sender: FDA-Public Use
  Company Number: US-TEVA-729945ACC

PATIENT
  Age: 56 Year
  Sex: Female
  Weight: 63 kg

DRUGS (1)
  1. FENTANYL. [Suspect]
     Active Substance: FENTANYL
     Indication: PAIN
     Dosage: 25MCG 5
     Route: 065
     Dates: start: 20161222

REACTIONS (4)
  - Tremor [Unknown]
  - Headache [Unknown]
  - Product adhesion issue [Unknown]
  - Influenza [Unknown]

NARRATIVE: CASE EVENT DATE: 20170108
